FAERS Safety Report 8317837-9 (Version None)
Quarter: 2012Q2

REPORT INFORMATION
  Report Type: 
  Country: None (occurrence: None)
  Receive Date: 20120427
  Receipt Date: 20120420
  Transmission Date: 20120825
  Serious: No
  Sender: FDA-Public Use
  Company Number: US-ROXANE LABORATORIES, INC.-2012-RO-01097RO

PATIENT
  Age: 50 Year
  Sex: Male

DRUGS (5)
  1. RANITIDINE [Concomitant]
  2. PROMETHAZINE [Concomitant]
  3. TRAZODONE HCL [Concomitant]
  4. MORPHINE [Suspect]
     Indication: PAIN
     Route: 048
  5. CAPTOPRIL [Concomitant]

REACTIONS (1)
  - DRUG SCREEN POSITIVE [None]
